FAERS Safety Report 6511296-4 (Version None)
Quarter: 2009Q4

REPORT INFORMATION
  Report Type: 
  Country: None (occurrence: None)
  Receive Date: 20091222
  Receipt Date: 20090324
  Transmission Date: 20100525
  Serious: No
  Sender: FDA-Public Use
  Company Number: US-ASTRAZENECA-2009UW07488

PATIENT
  Age: 20777 Day
  Sex: Male

DRUGS (3)
  1. CRESTOR [Suspect]
     Route: 048
     Dates: start: 20090306
  2. ZOCOR [Concomitant]
  3. LIPITOR [Concomitant]

REACTIONS (1)
  - MUSCLE SPASMS [None]
